FAERS Safety Report 14142767 (Version 3)
Quarter: 2018Q1

REPORT INFORMATION
  Report Type: Spontaneous
  Country: ES (occurrence: ES)
  Receive Date: 20171030
  Receipt Date: 20180227
  Transmission Date: 20180508
  Serious: Yes (Other)
  Sender: FDA-Public Use
  Company Number: ES-JNJFOC-20171032559

PATIENT
  Age: 52 Year
  Sex: Male

DRUGS (2)
  1. METOJECT [Concomitant]
     Active Substance: METHOTREXATE SODIUM
     Indication: RHEUMATOID ARTHRITIS
     Dosage: 15 DOSES
     Route: 058
     Dates: start: 20131024
  2. SIMPONI [Suspect]
     Active Substance: GOLIMUMAB
     Indication: RHEUMATOID ARTHRITIS
     Dosage: ONE YEAR AGO
     Route: 058
     Dates: start: 20161003

REACTIONS (2)
  - Mitral valve incompetence [Not Recovered/Not Resolved]
  - Mitral valve prolapse [Not Recovered/Not Resolved]

NARRATIVE: CASE EVENT DATE: 20171023
